FAERS Safety Report 13402663 (Version 4)
Quarter: 2018Q2

REPORT INFORMATION
  Report Type: Spontaneous
  Country: US (occurrence: US)
  Receive Date: 20170404
  Receipt Date: 20180604
  Transmission Date: 20180711
  Serious: No
  Sender: FDA-Public Use
  Company Number: US-ACTELION-A-US2017-151877

PATIENT
  Age: 41 Year
  Sex: Female
  Weight: 104.31 kg

DRUGS (5)
  1. UPTRAVI [Suspect]
     Active Substance: SELEXIPAG
     Indication: PULMONARY ARTERIAL HYPERTENSION
     Dosage: 800 MCG, BID
     Route: 048
     Dates: start: 201703
  2. LETAIRIS [Concomitant]
     Active Substance: AMBRISENTAN
  3. ADCIRCA [Concomitant]
     Active Substance: TADALAFIL
  4. UPTRAVI [Suspect]
     Active Substance: SELEXIPAG
     Dosage: 400 MCG, BID
     Route: 048
  5. UPTRAVI [Suspect]
     Active Substance: SELEXIPAG
     Dosage: UNK
     Route: 048
     Dates: start: 201702

REACTIONS (8)
  - Dyspnoea exertional [Recovered/Resolved]
  - Back pain [Unknown]
  - Myalgia [Unknown]
  - Arthralgia [Unknown]
  - Dyspnoea [Recovered/Resolved]
  - Condition aggravated [Unknown]
  - Headache [Unknown]
  - Pain [Recovered/Resolved]

NARRATIVE: CASE EVENT DATE: 20180504
